FAERS Safety Report 7141435-6 (Version None)
Quarter: 2010Q4

REPORT INFORMATION
  Report Type: 
  Country: None (occurrence: None)
  Receive Date: 20101119
  Receipt Date: 20100405
  Transmission Date: 20110411
  Serious: Yes (Other)
  Sender: FDA-Public Use
  Company Number: US-JNJFOC-20100205688

PATIENT
  Age: 4 Year
  Sex: Male
  Weight: 16.7831 kg

DRUGS (5)
  1. PEPCID [Suspect]
     Indication: GASTROOESOPHAGEAL REFLUX DISEASE
     Dosage: 10 MG, 2 IN 1 DAY, ORAL
     Route: 048
     Dates: start: 20090729
  2. POLYVITAMIN (POLYVITAMIN /01103301/) [Concomitant]
  3. IRON (IRON) [Concomitant]
  4. VITAMIN D [Concomitant]
  5. MIRALAX [Concomitant]

REACTIONS (1)
  - OVERDOSE [None]
